FAERS Safety Report 25839324 (Version 1)
Quarter: 2025Q3

REPORT INFORMATION
  Report Type: Spontaneous
  Country: RU (occurrence: RU)
  Receive Date: 20250924
  Receipt Date: 20250924
  Transmission Date: 20251020
  Serious: Yes (Hospitalization, Other)
  Sender: Steriscience PTE
  Company Number: RU-STERISCIENCE B.V.-2025-ST-001520

PATIENT
  Age: 36 Year

DRUGS (3)
  1. VANCOMYCIN [Suspect]
     Active Substance: VANCOMYCIN
     Indication: Endocarditis
     Route: 042
  2. GENTAMICIN [Suspect]
     Active Substance: GENTAMICIN
     Indication: Endocarditis
     Route: 042
  3. CEFIXIME [Concomitant]
     Active Substance: CEFIXIME
     Indication: Symptomatic treatment
     Route: 048

REACTIONS (3)
  - Pulmonary embolism [Unknown]
  - Acute kidney injury [None]
  - Drug ineffective [Unknown]
